FAERS Safety Report 11390097 (Version 3)
Quarter: 2015Q4

REPORT INFORMATION
  Report Type: Spontaneous
  Country: DE (occurrence: DE)
  Receive Date: 20150818
  Receipt Date: 20151015
  Transmission Date: 20160304
  Serious: Yes (Hospitalization, Disabling, Other)
  Sender: FDA-Public Use
  Company Number: DE-THROMBOGENICS NV-SPO-2015-1994

PATIENT
  Age: 74 Year
  Sex: Female

DRUGS (6)
  1. MARCUMAR [Concomitant]
     Active Substance: PHENPROCOUMON
     Indication: PRODUCT USED FOR UNKNOWN INDICATION
     Dosage: UNK
  2. FORMOTEROL [Concomitant]
     Active Substance: FORMOTEROL
     Indication: PRODUCT USED FOR UNKNOWN INDICATION
     Dosage: UNK
  3. SIMVASTATIN. [Concomitant]
     Active Substance: SIMVASTATIN
     Indication: PRODUCT USED FOR UNKNOWN INDICATION
     Dosage: UNK
  4. PANTOZOL [Concomitant]
     Active Substance: PANTOPRAZOLE SODIUM
     Indication: PRODUCT USED FOR UNKNOWN INDICATION
     Dosage: UNK
  5. JETREA [Suspect]
     Active Substance: OCRIPLASMIN
     Indication: VITREOUS ADHESIONS
     Dosage: 0.125 MG, ONE TIME DOSE
     Route: 031
     Dates: start: 20150616, end: 20150616
  6. LYRICA [Concomitant]
     Active Substance: PREGABALIN
     Indication: PRODUCT USED FOR UNKNOWN INDICATION
     Dosage: UNK

REACTIONS (11)
  - Retinopathy [Unknown]
  - Visual acuity reduced [Recovering/Resolving]
  - Visual field defect [Unknown]
  - Chromatopsia [Not Recovered/Not Resolved]
  - Vision blurred [Unknown]
  - Pupillary reflex impaired [Unknown]
  - Visual impairment [Recovering/Resolving]
  - Retinal injury [Unknown]
  - Subretinal fluid [Unknown]
  - Photopsia [Unknown]
  - Retinogram abnormal [Unknown]

NARRATIVE: CASE EVENT DATE: 20150617
